FAERS Safety Report 14017263 (Version 1)
Quarter: 2017Q3

REPORT INFORMATION
  Report Type: Spontaneous
  Country: US (occurrence: US)
  Receive Date: 20170927
  Receipt Date: 20170927
  Transmission Date: 20171128
  Serious: Yes (Congenital Anomaly, Other)
  Sender: FDA-Public Use
  Company Number: US-SUNOVION-2017SUN004208

PATIENT

DRUGS (5)
  1. MELATONIN [Concomitant]
     Active Substance: MELATONIN
  2. OXCARBAZEPINE. [Concomitant]
     Active Substance: OXCARBAZEPINE
  3. BENADRYL [Concomitant]
     Active Substance: DIPHENHYDRAMINE HYDROCHLORIDE
  4. LATUDA [Suspect]
     Active Substance: LURASIDONE HYDROCHLORIDE
     Route: 064
  5. CELEXA [Concomitant]
     Active Substance: CITALOPRAM HYDROBROMIDE

REACTIONS (4)
  - Congenital eye disorder [Unknown]
  - Blindness congenital [Unknown]
  - Foetal exposure during pregnancy [Unknown]
  - Eye movement disorder [Unknown]
